FAERS Safety Report 5847602-3 (Version None)
Quarter: 2008Q3

REPORT INFORMATION
  Report Type: 
  Country: None (occurrence: None)
  Receive Date: 20080815
  Receipt Date: 20080815
  Transmission Date: 20090109
  Serious: Yes (Other)
  Sender: FDA-Public Use
  Company Number: None

PATIENT
  Sex: Female
  Weight: 58.514 kg

DRUGS (2)
  1. LEVOTHROID [Suspect]
     Indication: BLOOD THYROID STIMULATING HORMONE DECREASED
     Dosage: 50MCG ONE QD PO
     Route: 048
     Dates: start: 20070221, end: 20071007
  2. SYNTHROID [Suspect]

REACTIONS (4)
  - HEART RATE INCREASED [None]
  - HEART RATE IRREGULAR [None]
  - PALPITATIONS [None]
  - PHARMACEUTICAL PRODUCT COMPLAINT [None]
